FAERS Safety Report 5840206-8 (Version None)
Quarter: 2008Q3

REPORT INFORMATION
  Report Type: 
  Country: None (occurrence: None)
  Receive Date: 20080807
  Receipt Date: 20080807
  Transmission Date: 20090109
  Serious: Yes (Hospitalization)
  Sender: FDA-Public Use
  Company Number: None

PATIENT
  Sex: Male
  Weight: 100.4 kg

DRUGS (17)
  1. CYCLOPHOSPHAMIDE [Suspect]
     Dosage: 1612 MG
  2. DOXIL [Suspect]
     Dosage: 86 MG
  3. NEULASTA [Suspect]
     Dosage: 6 MG
  4. PREDNISONE [Suspect]
     Dosage: 400 MG
  5. RITUXIMAB (MOAB C2B8 ANTI CD20, CHIMERIC) [Suspect]
     Dosage: 806 MG
  6. VINCRISTINE SULFATE [Suspect]
     Dosage: 2 MG
  7. COREG [Concomitant]
  8. DARVON [Concomitant]
  9. ERGOCALCIFEROL [Concomitant]
  10. FENOFIBRATE [Concomitant]
  11. KLOR-CON [Concomitant]
  12. LASIX [Concomitant]
  13. METFORMIN HCL [Concomitant]
  14. METOPROLOL SUCCINATE [Concomitant]
  15. NIFEDIPINE [Concomitant]
  16. TERAZOSIN HCL [Concomitant]
  17. ZOCOR [Concomitant]

REACTIONS (4)
  - BLOOD CULTURE POSITIVE [None]
  - LOBAR PNEUMONIA [None]
  - STAPHYLOCOCCAL INFECTION [None]
  - TACHYCARDIA [None]
